FAERS Safety Report 17494528 (Version 1)
Quarter: 2020Q1

REPORT INFORMATION
  Report Type: Spontaneous
  Country: IT (occurrence: IT)
  Receive Date: 20200304
  Receipt Date: 20200304
  Transmission Date: 20200409
  Serious: Yes (Hospitalization)
  Sender: FDA-Public Use
  Company Number: IT-ASTRAZENECA-2020SE29373

PATIENT
  Age: 58 Year
  Sex: Female
  Weight: 69 kg

DRUGS (6)
  1. XGEVA [Concomitant]
     Active Substance: DENOSUMAB
     Dosage: 1.0DF UNKNOWN
     Dates: start: 20190416, end: 20191115
  2. BRILIQUE [Suspect]
     Active Substance: TICAGRELOR
     Indication: INFARCTION
     Route: 048
     Dates: start: 20190610, end: 20191216
  3. ASPIRINETTA [Concomitant]
     Active Substance: ASPIRIN
     Indication: PROPHYLAXIS
     Dosage: 1.0DF UNKNOWN
     Route: 048
     Dates: start: 20190610, end: 20191216
  4. BISOPROLOL FUMARATE. [Concomitant]
     Active Substance: BISOPROLOL FUMARATE
     Dosage: 3.75MG UNKNOWN
     Route: 048
  5. ATORVASTATIN [Suspect]
     Active Substance: ATORVASTATIN
     Indication: HYPERCHOLESTEROLAEMIA
     Route: 048
     Dates: start: 20190610, end: 20191216
  6. VERZENIO [Suspect]
     Active Substance: ABEMACICLIB
     Indication: BREAST NEOPLASM
     Route: 048
     Dates: start: 20190417, end: 20191217

REACTIONS (6)
  - Blood bilirubin increased [Not Recovered/Not Resolved]
  - Transaminases increased [Not Recovered/Not Resolved]
  - Renal failure [Not Recovered/Not Resolved]
  - Rhabdomyolysis [Not Recovered/Not Resolved]
  - Hepatitis [Not Recovered/Not Resolved]
  - Hypokalaemia [Not Recovered/Not Resolved]

NARRATIVE: CASE EVENT DATE: 20191214
